FAERS Safety Report 9471317 (Version 2)
Quarter: 2013Q4

REPORT INFORMATION
  Report Type: Report from Study
  Country: CA (occurrence: CA)
  Receive Date: 20130822
  Receipt Date: 20131212
  Transmission Date: 20140711
  Serious: Yes (Other)
  Sender: FDA-Public Use
  Company Number: CA-SANOFI-AVENTIS-2013SA083366

PATIENT
  Sex: 0

DRUGS (4)
  1. ELOXATIN [Suspect]
     Indication: COLORECTAL CANCER
     Route: 065
     Dates: start: 20120107, end: 20120728
  2. ELOXATIN [Suspect]
     Indication: COLORECTAL CANCER
     Route: 065
     Dates: start: 20120910, end: 20121230
  3. XELODA [Suspect]
     Indication: PRODUCT USED FOR UNKNOWN INDICATION
     Route: 065
  4. XELODA [Suspect]
     Indication: PRODUCT USED FOR UNKNOWN INDICATION
     Route: 065

REACTIONS (3)
  - Disease progression [Unknown]
  - Toxicity to various agents [Unknown]
  - Adverse drug reaction [Unknown]
